FAERS Safety Report 23136248 (Version 2)
Quarter: 2024Q1

REPORT INFORMATION
  Report Type: Report from Study
  Country: JP (occurrence: JP)
  Receive Date: 20231102
  Receipt Date: 20240325
  Transmission Date: 20240409
  Serious: Yes (Hospitalization, Other)
  Sender: FDA-Public Use
  Company Number: JP-UCBJ-CD202311046UCBPHAPROD

PATIENT
  Age: 15 Year
  Sex: Male
  Weight: 58.7 kg

DRUGS (24)
  1. VIMPAT [Suspect]
     Active Substance: LACOSAMIDE
     Indication: Epilepsy
     Dosage: 25 MILLIGRAM, 2X/DAY (BID)
     Route: 048
     Dates: start: 20231017, end: 20231019
  2. VIMPAT [Suspect]
     Active Substance: LACOSAMIDE
     Indication: Generalised tonic-clonic seizure
  3. VIMPAT [Suspect]
     Active Substance: LACOSAMIDE
     Indication: Petit mal epilepsy
  4. VIMPAT [Suspect]
     Active Substance: LACOSAMIDE
     Indication: Myoclonic epilepsy
  5. ZONISAMIDE [Concomitant]
     Active Substance: ZONISAMIDE
     Indication: Epilepsy
     Dosage: 300 MILLIGRAM DAILY
     Route: 048
     Dates: start: 20120619, end: 20231019
  6. ZONISAMIDE [Concomitant]
     Active Substance: ZONISAMIDE
     Indication: Generalised tonic-clonic seizure
  7. ZONISAMIDE [Concomitant]
     Active Substance: ZONISAMIDE
     Indication: Petit mal epilepsy
  8. ZONISAMIDE [Concomitant]
     Active Substance: ZONISAMIDE
     Indication: Myoclonic epilepsy
  9. CLONAZEPAM [Concomitant]
     Active Substance: CLONAZEPAM
     Indication: Epilepsy
     Dosage: 1 MILLIGRAM DAILY
     Route: 048
     Dates: start: 20160831, end: 20231019
  10. CLONAZEPAM [Concomitant]
     Active Substance: CLONAZEPAM
     Indication: Generalised tonic-clonic seizure
  11. CLONAZEPAM [Concomitant]
     Active Substance: CLONAZEPAM
     Indication: Petit mal epilepsy
  12. CLONAZEPAM [Concomitant]
     Active Substance: CLONAZEPAM
     Indication: Myoclonic epilepsy
  13. VALPROATE SODIUM [Concomitant]
     Active Substance: VALPROATE SODIUM
     Indication: Epilepsy
     Dosage: 1600 MILLIGRAM DAILY
     Route: 048
     Dates: start: 20091215, end: 20231019
  14. VALPROATE SODIUM [Concomitant]
     Active Substance: VALPROATE SODIUM
     Indication: Generalised tonic-clonic seizure
  15. VALPROATE SODIUM [Concomitant]
     Active Substance: VALPROATE SODIUM
     Indication: Petit mal epilepsy
  16. VALPROATE SODIUM [Concomitant]
     Active Substance: VALPROATE SODIUM
     Indication: Myoclonic epilepsy
  17. LEVOCARNITINE [Concomitant]
     Active Substance: LEVOCARNITINE
     Indication: Epilepsy
     Dosage: 500 MILLIGRAM DAILY
     Route: 048
     Dates: start: 20211204, end: 20231019
  18. LEVOCARNITINE [Concomitant]
     Active Substance: LEVOCARNITINE
     Indication: Generalised tonic-clonic seizure
  19. LEVOCARNITINE [Concomitant]
     Active Substance: LEVOCARNITINE
     Indication: Petit mal epilepsy
  20. LEVOCARNITINE [Concomitant]
     Active Substance: LEVOCARNITINE
     Indication: Myoclonic epilepsy
  21. MIYA-BM [Concomitant]
     Active Substance: CLOSTRIDIUM BUTYRICUM SPORES STRAIN M-55
     Indication: Product used for unknown indication
     Dosage: UNK
     Route: 048
     Dates: start: 20210331, end: 20231019
  22. ALESION [Concomitant]
     Active Substance: EPINASTINE HYDROCHLORIDE
     Indication: Product used for unknown indication
     Dosage: 20 MILLIGRAM DAILY
     Route: 048
     Dates: start: 20230906, end: 20231019
  23. CARBOCYSTEINE [Concomitant]
     Active Substance: CARBOCYSTEINE
     Indication: Product used for unknown indication
     Dosage: 1000 MILLIGRAM, DAILY
     Route: 048
     Dates: start: 20230906, end: 20231019
  24. AMBROXOL HYDROCHLORIDE [Concomitant]
     Active Substance: AMBROXOL HYDROCHLORIDE
     Indication: Product used for unknown indication
     Dosage: UNK
     Route: 048
     Dates: start: 20230906, end: 20231019

REACTIONS (6)
  - Cardio-respiratory arrest [Recovered/Resolved with Sequelae]
  - Status epilepticus [Recovered/Resolved with Sequelae]
  - Hypoxic-ischaemic encephalopathy [Unknown]
  - Bedridden [Unknown]
  - Prescribed underdose [Unknown]
  - Off label use [Unknown]

NARRATIVE: CASE EVENT DATE: 20231017
